FAERS Safety Report 16237010 (Version 2)
Quarter: 2019Q2

REPORT INFORMATION
  Report Type: Spontaneous
  Country: US (occurrence: US)
  Receive Date: 20190425
  Receipt Date: 20190513
  Transmission Date: 20190711
  Serious: Yes (Life-Threatening, Hospitalization)
  Sender: FDA-Public Use
  Company Number: US-TEVA-2019-US-1041310

PATIENT
  Age: 13 Year
  Sex: Female

DRUGS (1)
  1. VERAPAMIL [Suspect]
     Active Substance: VERAPAMIL HYDROCHLORIDE
     Indication: INTENTIONAL OVERDOSE
     Dosage: FORMULATION: EXTENDED RELEASE RABLET
     Route: 048

REACTIONS (6)
  - Myocardial stunning [Recovered/Resolved]
  - Atrioventricular block complete [Recovered/Resolved]
  - Intentional overdose [Unknown]
  - Arrhythmia [Recovered/Resolved]
  - Electrolyte imbalance [Recovered/Resolved]
  - Vasoplegia syndrome [Recovered/Resolved]
